FAERS Safety Report 13090347 (Version 1)
Quarter: 2017Q1

REPORT INFORMATION
  Report Type: Spontaneous
  Country: FR (occurrence: FR)
  Receive Date: 20170105
  Receipt Date: 20170105
  Transmission Date: 20170428
  Serious: Yes (Hospitalization)
  Sender: FDA-Public Use
  Company Number: FR-PFIZER INC-2017000300

PATIENT
  Age: 46 Year
  Sex: Female

DRUGS (5)
  1. ESOMEPRAZOLE MAGNESIUM. [Concomitant]
     Active Substance: ESOMEPRAZOLE MAGNESIUM
  2. KEPPRA [Concomitant]
     Active Substance: LEVETIRACETAM
  3. SPIRONOLACTONE. [Concomitant]
     Active Substance: SPIRONOLACTONE
  4. PRODILANTIN [Suspect]
     Active Substance: FOSPHENYTOIN SODIUM
     Dosage: 375 MG, 2X/DAY (THROUGHOUT 30 MINUTES)
     Route: 042
     Dates: start: 20151216, end: 20151228
  5. VIMPAT [Concomitant]
     Active Substance: LACOSAMIDE

REACTIONS (2)
  - Anticonvulsant drug level increased [Recovered/Resolved]
  - Hypotension [Recovered/Resolved]

NARRATIVE: CASE EVENT DATE: 20151227
